FAERS Safety Report 25058628 (Version 2)
Quarter: 2025Q2

REPORT INFORMATION
  Report Type: Spontaneous
  Country: US (occurrence: US)
  Receive Date: 20250310
  Receipt Date: 20250424
  Transmission Date: 20250717
  Serious: Yes (Other)
  Sender: ELI LILLY AND COMPANY
  Company Number: US-ELI_LILLY_AND_COMPANY-US202502021797

PATIENT
  Age: 68 Year
  Sex: Female

DRUGS (2)
  1. KISUNLA [Suspect]
     Active Substance: DONANEMAB-AZBT
     Indication: Dementia Alzheimer^s type
     Dosage: 700 MG, MONTHLY (1/M)
     Route: 065
     Dates: start: 20250108
  2. KISUNLA [Suspect]
     Active Substance: DONANEMAB-AZBT
     Route: 065

REACTIONS (2)
  - Cerebral atrophy [Unknown]
  - Hippocampal atrophy [Unknown]
